FAERS Safety Report 11965809 (Version 1)
Quarter: 2016Q1

REPORT INFORMATION
  Report Type: Spontaneous
  Country: None (occurrence: None)
  Receive Date: 20160125
  Receipt Date: 20160125
  Transmission Date: 20160526
  Serious: Yes (Disabling)
  Sender: FDA-Public Use
  Company Number: None

PATIENT
  Age: 21 Year
  Sex: Female
  Weight: 54.43 kg

DRUGS (1)
  1. YAZ [Suspect]
     Active Substance: DROSPIRENONE\ETHINYL ESTRADIOL
     Indication: CONTRACEPTION
     Dosage: 1 PILL, ONCE DAILY, TAKEN BY MOUTH
     Dates: start: 20090101, end: 20100531

REACTIONS (1)
  - Caffeine allergy [None]

NARRATIVE: CASE EVENT DATE: 20090105
